FAERS Safety Report 7183239-4 (Version None)
Quarter: 2010Q4

REPORT INFORMATION
  Report Type: 
  Country: None (occurrence: None)
  Receive Date: 20101222
  Receipt Date: 20100615
  Transmission Date: 20110411
  Serious: No
  Sender: FDA-Public Use
  Company Number: A0852964A

PATIENT
  Age: 6 Year
  Sex: Male
  Weight: 19.8 kg

DRUGS (2)
  1. FLONASE [Suspect]
     Dosage: 1SPR PER DAY
     Route: 045
     Dates: start: 20090811
  2. VERAMYST [Suspect]
     Dosage: 1SPR PER DAY
     Route: 045
     Dates: start: 20090602

REACTIONS (11)
  - ACTIVITIES OF DAILY LIVING IMPAIRED [None]
  - DRUG INEFFECTIVE [None]
  - EYE DISCHARGE [None]
  - EYE SWELLING [None]
  - HEADACHE [None]
  - NASAL CONGESTION [None]
  - OCULAR HYPERAEMIA [None]
  - PRURITUS [None]
  - RHINITIS ALLERGIC [None]
  - SEASONAL ALLERGY [None]
  - SNEEZING [None]
